FAERS Safety Report 5387699-0 (Version None)
Quarter: 2007Q3

REPORT INFORMATION
  Report Type: 
  Country: None (occurrence: None)
  Receive Date: 20070712
  Receipt Date: 20070629
  Transmission Date: 20080115
  Serious: Yes (Hospitalization)
  Sender: FDA-Public Use
  Company Number: PAR_01621_2007

PATIENT
  Age: 50 Year
  Sex: Female

DRUGS (2)
  1. IBUPROFEN [Suspect]
     Indication: ABDOMINAL PAIN LOWER
     Dosage: (ORAL)
     Route: 048
     Dates: start: 20061001, end: 20061101
  2. CIPROFLOXACIN [Suspect]
     Indication: ABDOMINAL PAIN LOWER
     Dosage: ORAL
     Route: 048
     Dates: start: 20061001, end: 20061101

REACTIONS (10)
  - ABDOMINAL PAIN LOWER [None]
  - ANOREXIA [None]
  - CARDIAC MURMUR [None]
  - DRUG TOXICITY [None]
  - HYPERCALCAEMIA [None]
  - HYPERPHOSPHATAEMIA [None]
  - METABOLIC ACIDOSIS [None]
  - NAUSEA [None]
  - RALES [None]
  - RENAL FAILURE ACUTE [None]
